FAERS Safety Report 14979990 (Version 1)
Quarter: 2018Q2

REPORT INFORMATION
  Report Type: Spontaneous
  Country: US (occurrence: US)
  Receive Date: 20180515
  Receipt Date: 20180515
  Transmission Date: 20180711
  Serious: Yes (Other)
  Sender: FDA-Public Use
  Company Number: None

PATIENT
  Age: 12 Year
  Sex: Male
  Weight: 64.68 kg

DRUGS (1)
  1. METHYLPHENIDATE ER 27MG [Suspect]
     Active Substance: METHYLPHENIDATE HYDROCHLORIDE
     Indication: ATTENTION DEFICIT/HYPERACTIVITY DISORDER
     Route: 048
     Dates: start: 201410, end: 201604

REACTIONS (5)
  - Product substitution issue [None]
  - Agitation [None]
  - Emotional disorder [None]
  - Drug effect decreased [None]
  - Anger [None]

NARRATIVE: CASE EVENT DATE: 20160425
